FAERS Safety Report 5842011-5 (Version None)
Quarter: 2008Q3

REPORT INFORMATION
  Report Type: 
  Country: None (occurrence: None)
  Receive Date: 20080811
  Receipt Date: 20080811
  Transmission Date: 20090109
  Serious: Yes (Disabling, Other)
  Sender: FDA-Public Use
  Company Number: None

PATIENT
  Age: 30 Year
  Sex: Female
  Weight: 71.6683 kg

DRUGS (2)
  1. DIFLUCAN [Suspect]
     Indication: FUNGAL INFECTION
     Dosage: 200MG  ONCE PO
     Route: 048
     Dates: start: 20080726, end: 20080726
  2. MONISTAT 7 [Suspect]
     Indication: FUNGAL INFECTION
     Dosage: 100MG OVER 7 DAYS VAG
     Route: 067
     Dates: start: 20080726, end: 20080730

REACTIONS (11)
  - ANGIOEDEMA [None]
  - CHAPPED LIPS [None]
  - CHEILITIS [None]
  - ERYTHEMA [None]
  - LIP DISCOLOURATION [None]
  - LIP EXFOLIATION [None]
  - LIP PAIN [None]
  - LIP SWELLING [None]
  - PRURITUS [None]
  - SIMILAR REACTION ON PREVIOUS EXPOSURE TO DRUG [None]
  - URTICARIA [None]
